FAERS Safety Report 7624252-X (Version None)
Quarter: 2011Q3

REPORT INFORMATION
  Report Type: 
  Country: None (occurrence: None)
  Receive Date: 20110701
  Receipt Date: 20100709
  Transmission Date: 20111222
  Serious: Yes (Hospitalization, Other)
  Sender: FDA-Public Use
  Company Number: 7010595

PATIENT
  Age: 55 Year
  Sex: Male
  Weight: 107 kg

DRUGS (8)
  1. REBIF [Suspect]
     Indication: MULTIPLE SCLEROSIS
     Dosage: SBCUTANEOUS; 44 MCG, 3 IN 1 WK, SUBCUTANEOUS; 22 MCG, 3 IN 1 WK, SUBCUTANEOUS; 44 MCG, 3 IN 1 WK
     Route: 058
     Dates: start: 20100101, end: 20100612
  2. REBIF [Suspect]
     Indication: MULTIPLE SCLEROSIS
     Dosage: SBCUTANEOUS; 44 MCG, 3 IN 1 WK, SUBCUTANEOUS; 22 MCG, 3 IN 1 WK, SUBCUTANEOUS; 44 MCG, 3 IN 1 WK
     Route: 058
     Dates: start: 20100101, end: 20101001
  3. REBIF [Suspect]
     Indication: MULTIPLE SCLEROSIS
     Dosage: SBCUTANEOUS; 44 MCG, 3 IN 1 WK, SUBCUTANEOUS; 22 MCG, 3 IN 1 WK, SUBCUTANEOUS; 44 MCG, 3 IN 1 WK
     Route: 058
     Dates: start: 20100506, end: 20100101
  4. ALLOPURINOL [Concomitant]
  5. INDOCIN [Concomitant]
  6. COLCHICINE [Concomitant]
  7. COREG [Concomitant]
  8. ATIVAN [Concomitant]

REACTIONS (8)
  - BALANCE DISORDER [None]
  - BONE PAIN [None]
  - FATIGUE [None]
  - NOCTURIA [None]
  - CORONARY ARTERY DISEASE [None]
  - PERICARDIAL EFFUSION [None]
  - ASTHENIA [None]
  - INFLUENZA LIKE ILLNESS [None]
